FAERS Safety Report 8666883 (Version 6)
Quarter: 2013Q2

REPORT INFORMATION
  Report Type: Spontaneous
  Country: US (occurrence: US)
  Receive Date: 20120716
  Receipt Date: 20130530
  Transmission Date: 20140414
  Serious: Yes (Hospitalization, Other)
  Sender: FDA-Public Use
  Company Number: US-ELI_LILLY_AND_COMPANY-US201201000215

PATIENT
  Age: 78 Year
  Sex: Male

DRUGS (18)
  1. FORTEO [Suspect]
     Indication: OSTEOPOROSIS
     Dosage: 20 UG, QD
     Dates: start: 201109
  2. FORTEO [Suspect]
     Dosage: 20 UG, QD
  3. FORTEO [Suspect]
     Dosage: 20 UG, QD
  4. FORTEO [Suspect]
     Dosage: 20 UG, QD
  5. FORTEO [Suspect]
     Dosage: 20 UG, QD
  6. B12 [Concomitant]
     Dosage: 1000 MG, QD
  7. IRON [Concomitant]
     Dosage: 45 MG, QD
  8. ARICEPT [Concomitant]
     Dosage: 10 MG, QD
  9. NAMENDA [Concomitant]
     Indication: PROPHYLAXIS
     Dosage: 10 MG, BID
  10. CALCIUM [Concomitant]
     Dosage: 600 MG, QD
  11. HYDROCODONE [Concomitant]
     Indication: PAIN
     Dosage: UNK, PRN
  12. PROTONIX [Concomitant]
     Dosage: 40 MG, QD
  13. ASPIRIN [Concomitant]
     Dosage: UNK UNK, QD
  14. CYMBALTA [Concomitant]
     Dosage: UNK
  15. LISINOPRIL [Concomitant]
     Dosage: UNK
  16. PLAVIX [Concomitant]
     Dosage: UNK
  17. PRAVASTATIN [Concomitant]
     Dosage: UNK
  18. VITAMINS [Concomitant]
     Dosage: UNK, QD

REACTIONS (15)
  - Joint dislocation [Recovered/Resolved]
  - Osteonecrosis [Recovered/Resolved]
  - Red blood cell count decreased [Recovering/Resolving]
  - Liver abscess [Unknown]
  - Asthenia [Unknown]
  - Device dislocation [Unknown]
  - Fall [Recovered/Resolved]
  - Scratch [Unknown]
  - Head injury [Unknown]
  - Contusion [Unknown]
  - Pain in extremity [Unknown]
  - Pain [Not Recovered/Not Resolved]
  - Malaise [Unknown]
  - Medication error [Unknown]
  - Fall [Unknown]
